FAERS Safety Report 25211594 (Version 5)
Quarter: 2025Q2

REPORT INFORMATION
  Report Type: Spontaneous
  Country: DE (occurrence: DE)
  Receive Date: 20250418
  Receipt Date: 20250523
  Transmission Date: 20250717
  Serious: No
  Sender: ASTELLAS
  Company Number: DE-ASTELLAS-2025-AER-020818

PATIENT
  Age: 55 Year
  Sex: Female

DRUGS (1)
  1. VEOZAH [Suspect]
     Active Substance: FEZOLINETANT
     Indication: Menopausal symptoms
     Route: 050
     Dates: start: 20240909, end: 20250404

REACTIONS (2)
  - Blood alkaline phosphatase increased [Recovered/Resolved]
  - Fatigue [Recovered/Resolved]

NARRATIVE: CASE EVENT DATE: 20250404
